FAERS Safety Report 7420695-8 (Version None)
Quarter: 2011Q2

REPORT INFORMATION
  Report Type: 
  Country: None (occurrence: None)
  Receive Date: 20110418
  Receipt Date: 20101129
  Transmission Date: 20111010
  Serious: Yes (Hospitalization, Other)
  Sender: FDA-Public Use
  Company Number: US-BAYER-201032433NA

PATIENT
  Age: 44 Year
  Sex: Female
  Weight: 48.526 kg

DRUGS (11)
  1. ASCORBIC ACID [Concomitant]
  2. ANALGESICS [Concomitant]
     Indication: PAIN
  3. ALEVE SINUS + HEADACHE [Concomitant]
     Dosage: UNK
     Dates: start: 19960101
  4. ADVIL LIQUI-GELS [Concomitant]
     Dosage: UNK
     Dates: start: 19960101
  5. YASMIN [Suspect]
     Dosage: UNK
     Dates: start: 20050601, end: 20100403
  6. OCELLA [Suspect]
     Dosage: UNK
     Dates: start: 20050601, end: 20100403
  7. YASMIN [Suspect]
     Indication: PRODUCT USED FOR UNKNOWN INDICATION
     Dosage: UNK UNK, QD
     Route: 048
     Dates: start: 20060101, end: 20100403
  8. PHENTERMINE [Concomitant]
     Indication: DECREASED APPETITE
     Dosage: 15 MG, UNK
     Dates: start: 20080909
  9. ADITEX [Concomitant]
     Indication: MEDICAL DIET
     Dosage: 15 MG, UNK
     Dates: start: 20090101, end: 20100101
  10. OCELLA [Suspect]
     Indication: PRODUCT USED FOR UNKNOWN INDICATION
     Route: 048
     Dates: start: 20060101, end: 20100403
  11. MULTI-VITAMIN [Concomitant]
     Dosage: UNK
     Dates: start: 19990101

REACTIONS (6)
  - CHOLELITHIASIS [None]
  - PANCREATITIS ACUTE [None]
  - BILE DUCT STONE [None]
  - ABDOMINAL PAIN UPPER [None]
  - CHOLECYSTITIS CHRONIC [None]
  - TRANSAMINASES INCREASED [None]
